FAERS Safety Report 10235452 (Version 2)
Quarter: 2014Q2

REPORT INFORMATION
  Report Type: Spontaneous
  Country: FI (occurrence: FI)
  Receive Date: 20140613
  Receipt Date: 20140613
  Transmission Date: 20141212
  Serious: Yes (Disabling)
  Sender: FDA-Public Use
  Company Number: FI-B.I. PHARMACEUTICALS,INC./RIDGEFIELD-2014-BI-23596SF

PATIENT
  Age: 79 Year
  Sex: Female

DRUGS (5)
  1. TRAJENTA [Suspect]
     Indication: DIABETES MELLITUS
     Dosage: 5 MG
     Route: 065
     Dates: start: 20140501, end: 20140505
  2. TRAJENTA [Suspect]
     Indication: RENAL FAILURE
  3. ORLOC [Concomitant]
     Dosage: 2.5 MG
     Route: 065
  4. MICARDIS PLUS [Concomitant]
     Dosage: DOSE PER APPLICATION AND DAILY DOSE: 80/12.5 MILLIGRAM
     Route: 065
  5. LIPITOR [Concomitant]
     Dosage: 20 MG
     Route: 065

REACTIONS (3)
  - Dyspnoea [Recovered/Resolved]
  - Hypersensitivity [Recovered/Resolved]
  - Pruritus generalised [Recovered/Resolved]
